FAERS Safety Report 8836170 (Version 1)
Quarter: 2012Q4

REPORT INFORMATION
  Report Type: 
  Country: US (occurrence: US)
  Receive Date: 20121011
  Receipt Date: 20121011
  Transmission Date: 20130627
  Serious: Yes (Hospitalization, Other)
  Sender: FDA-Public Use
  Company Number: US-PFIZER INC-HQ3363518JUL2002

PATIENT
  Age: 63 Year
  Sex: Female
  Weight: 63.1 kg

DRUGS (8)
  1. PREMPRO [Suspect]
     Indication: MENOPAUSAL SYMPTOMS
     Dosage: UNK,0.625mg/2.5mg daily
     Route: 048
     Dates: start: 1992, end: 200202
  2. PREMPRO [Suspect]
     Dosage: UNK,0.625mg/2.5mg every other day
     Route: 048
     Dates: start: 200204
  3. MEDROXYPROGESTERONE ACETATE [Suspect]
     Indication: HORMONE REPLACEMENT THERAPY
     Dosage: UNK
     Route: 048
     Dates: start: 1999, end: 2002
  4. CYCRIN [Suspect]
     Indication: HORMONE REPLACEMENT THERAPY
     Dosage: UNK
     Route: 048
     Dates: start: 1998
  5. ESTRADIOL [Suspect]
     Indication: HORMONE REPLACEMENT THERAPY
     Dosage: UNK
     Dates: start: 1998, end: 2002
  6. ACETYLSALICYLIC ACID [Concomitant]
     Dosage: UNK
     Dates: start: 199512
  7. CITALOPRAM HYDROBROMIDE [Concomitant]
  8. FUROSEMIDE [Concomitant]
     Dosage: UNK

REACTIONS (3)
  - Coronary artery disease [Recovered/Resolved]
  - Intraductal proliferative breast lesion [Unknown]
  - Dyspnoea [Unknown]
